FAERS Safety Report 9924584 (Version 1)
Quarter: 2014Q1

REPORT INFORMATION
  Report Type: Spontaneous
  Country: US (occurrence: None)
  Receive Date: 20140224
  Receipt Date: 20140224
  Transmission Date: 20141002
  Serious: Yes (Hospitalization)
  Sender: FDA-Public Use
  Company Number: None

PATIENT
  Age: 35 Year
  Sex: Female
  Weight: 50.8 kg

DRUGS (2)
  1. PROPOFOL [Suspect]
     Indication: SURGERY
     Route: 042
     Dates: start: 20140218, end: 20140218
  2. PROPOFOL [Suspect]
     Indication: ANAESTHESIA PROCEDURE
     Route: 042
     Dates: start: 20140218, end: 20140218

REACTIONS (5)
  - Procedural hypotension [None]
  - Tachycardia [None]
  - Postoperative fever [None]
  - Disseminated intravascular coagulation [None]
  - Acute respiratory distress syndrome [None]
